FAERS Safety Report 6259903-8 (Version None)
Quarter: 2009Q3

REPORT INFORMATION
  Report Type: 
  Country: None (occurrence: None)
  Receive Date: 20090708
  Receipt Date: 20090629
  Transmission Date: 20100115
  Serious: Yes (Other)
  Sender: FDA-Public Use
  Company Number: PHHY2009IT26505

PATIENT
  Age: 43 Year
  Sex: Female

DRUGS (6)
  1. ZOLEDRONIC ACID [Suspect]
     Dosage: 4 MG, QMO
  2. LETROZOLE [Concomitant]
     Indication: BREAST CANCER
  3. CYCLOPHOSPHAMIDE [Concomitant]
  4. METHOTREXATE [Concomitant]
  5. FLUOROURACIL [Concomitant]
  6. RADIOTHERAPY [Concomitant]

REACTIONS (1)
  - OSTEONECROSIS [None]
